FAERS Safety Report 6604859-9 (Version None)
Quarter: 2010Q1

REPORT INFORMATION
  Report Type: 
  Country: None (occurrence: None)
  Receive Date: 20100226
  Receipt Date: 20100222
  Transmission Date: 20100710
  Serious: Yes (Other)
  Sender: FDA-Public Use
  Company Number: A0815047A

PATIENT
  Sex: Female

DRUGS (4)
  1. REQUIP [Suspect]
     Indication: RESTLESS LEGS SYNDROME
     Dosage: 1MG TWICE PER DAY
     Route: 048
     Dates: start: 20081101
  2. CRESTOR [Concomitant]
  3. PLAVIX [Concomitant]
  4. HEART MEDICATION [Concomitant]

REACTIONS (4)
  - ADVERSE EVENT [None]
  - CARDIAC OPERATION [None]
  - DRUG INEFFECTIVE [None]
  - OVERDOSE [None]
